FAERS Safety Report 6788295-0 (Version None)
Quarter: 2010Q2

REPORT INFORMATION
  Report Type: 
  Country: None (occurrence: None)
  Receive Date: 20100623
  Receipt Date: 20080220
  Transmission Date: 20101027
  Serious: No
  Sender: FDA-Public Use
  Company Number: US-PFIZER INC-2008016125

PATIENT
  Sex: Female
  Weight: 64 kg

DRUGS (2)
  1. DEPO-SUBQ PROVERA 104 [Suspect]
     Indication: CONTRACEPTION
     Dosage: FIRST INJECTION
     Route: 058
     Dates: start: 20060101, end: 20060101
  2. DEPO-SUBQ PROVERA 104 [Suspect]
     Dosage: LAST INJECTION
     Route: 058
     Dates: start: 20071001, end: 20071001

REACTIONS (1)
  - AMENORRHOEA [None]
